FAERS Safety Report 7621503-2 (Version None)
Quarter: 2011Q3

REPORT INFORMATION
  Report Type: 
  Country: None (occurrence: None)
  Receive Date: 20110719
  Receipt Date: 20110711
  Transmission Date: 20111222
  Serious: Yes (Hospitalization)
  Sender: FDA-Public Use
  Company Number: GB-AMGEN-GBRCT2011034935

PATIENT
  Age: 56 Year
  Sex: Female

DRUGS (23)
  1. PANITUMUMAB [Suspect]
     Indication: GASTROOESOPHAGEAL CANCER
     Dosage: UNK
     Dates: start: 20101125
  2. MOVIPREP [Concomitant]
     Dosage: UNK
     Dates: start: 20101022
  3. HYDROXYZINE HCL [Concomitant]
     Dosage: 10 MG, QD
     Dates: start: 20101214
  4. VENLAFAXINE [Concomitant]
     Dosage: 150 MG, QD
  5. NYSTATIN [Concomitant]
     Dosage: 1 ML, QID
     Dates: start: 20101214
  6. SANDO K [Concomitant]
     Dosage: UNK UNK, BID
     Dates: start: 20110125
  7. CYCLIZINE [Concomitant]
     Dosage: 50 MG, TID
     Dates: start: 20110104
  8. ORAMORPH SR [Concomitant]
     Dosage: 10 MG, PRN
     Dates: start: 20110314
  9. INFUMORPH [Concomitant]
     Dosage: 10 MG, BID
     Dates: start: 20110330
  10. TRAMADOL HCL [Concomitant]
     Dosage: 100 MG, QID
     Dates: start: 20101119
  11. MORPHINE SULFATE [Concomitant]
     Dosage: 10 MG, PRN
     Dates: start: 20101125
  12. DEXAMETHASONE [Concomitant]
     Dosage: 4 MG, TID
     Dates: start: 20101125
  13. LORAZEPAM [Concomitant]
     Dosage: 1 MG, TID
     Dates: start: 20101214
  14. ACETAMINOPHEN [Concomitant]
     Dosage: 1 G, QD
     Dates: start: 20101022
  15. LANSOPRAZOLE [Concomitant]
     Dosage: 50 MG, QD
     Dates: start: 20101022
  16. LYMECYCLINE [Concomitant]
     Dosage: 405 MG, QD
     Dates: start: 20110215
  17. OXALIPLATIN [Concomitant]
     Indication: GASTROOESOPHAGEAL CANCER
     Dosage: UNK
     Dates: start: 20101125
  18. LEVOMEPROMAZINE [Concomitant]
     Dosage: 625 MG, QD
     Dates: start: 20101119
  19. CLORHEXIDINE AND CETRIMIDE AQUEOS IRRIG. [Concomitant]
     Dosage: 10 ML, QID
     Dates: start: 20101214
  20. FLUCONAZOLE [Concomitant]
     Dosage: 50 MG, QD
     Dates: start: 20110304
  21. EPIRUBICIN [Concomitant]
     Indication: GASTROOESOPHAGEAL CANCER
     Dosage: UNK
     Dates: start: 20101125
  22. CAPECITABINE [Concomitant]
     Indication: GASTROOESOPHAGEAL CANCER
     Dosage: UNK
     Dates: start: 20101125
  23. DOMPERIDONE [Concomitant]
     Dosage: 10 MG, TID
     Dates: start: 20101119

REACTIONS (1)
  - INFECTION [None]
